FAERS Safety Report 9716389 (Version 1)
Quarter: 2013Q4

REPORT INFORMATION
  Report Type: Spontaneous
  Country: CA (occurrence: None)
  Receive Date: 20131126
  Receipt Date: 20131126
  Transmission Date: 20140711
  Serious: Yes (Hospitalization)
  Sender: FDA-Public Use
  Company Number: None

PATIENT
  Age: 65 Year
  Sex: Male

DRUGS (2)
  1. CASODEX [Suspect]
  2. TRIPTORELIN PAMOATE [Suspect]

REACTIONS (4)
  - Haematuria [None]
  - Urinary tract obstruction [None]
  - Device occlusion [None]
  - Thrombosis [None]
